FAERS Safety Report 26112463 (Version 1)
Quarter: 2025Q4

REPORT INFORMATION
  Report Type: Spontaneous
  Country: US (occurrence: US)
  Receive Date: 20251202
  Receipt Date: 20251202
  Transmission Date: 20260119
  Serious: Yes (Other)
  Sender: SANOFI AVENTIS
  Company Number: US-SA-2025SA360286

PATIENT
  Sex: Female
  Weight: 78.18 kg

DRUGS (9)
  1. DUPIXENT [Suspect]
     Active Substance: DUPILUMAB
     Indication: Dermatitis atopic
     Dosage: 300MG,QOW
     Route: 058
  2. DIETARY SUPPLEMENT\HERBALS\MILK THISTLE [Concomitant]
     Active Substance: MILK THISTLE
  3. VITAMINS [Concomitant]
     Active Substance: VITAMINS
  4. QUERCETIN [Concomitant]
     Active Substance: QUERCETIN
  5. VITAMIN D3 [Concomitant]
     Active Substance: CHOLECALCIFEROL
  6. CURCUMIN [Concomitant]
     Active Substance: CURCUMIN
  7. PROTONIX [Concomitant]
     Active Substance: PANTOPRAZOLE SODIUM
  8. Calcium+D3+Collagen [Concomitant]
  9. BIOTIN [Concomitant]
     Active Substance: BIOTIN

REACTIONS (1)
  - Eye infection fungal [Unknown]
